FAERS Safety Report 5777066-X (Version None)
Quarter: 2008Q2

REPORT INFORMATION
  Report Type: 
  Country: None (occurrence: None)
  Receive Date: 20080616
  Receipt Date: 20080603
  Transmission Date: 20081010
  Serious: Yes (Life-Threatening)
  Sender: FDA-Public Use
  Company Number: 8033467

PATIENT
  Age: 31 Year
  Sex: Female

DRUGS (3)
  1. NIFEDIPINE [Suspect]
  2. FUROSEMIDE [Suspect]
  3. CANDESARTAN CILEXETIL [Suspect]
     Dosage: 4 MG /D

REACTIONS (9)
  - ANAEMIA [None]
  - COAGULATION TIME PROLONGED [None]
  - DEEP VEIN THROMBOSIS [None]
  - DIALYSIS [None]
  - DRUG EXPOSURE DURING PREGNANCY [None]
  - NEPHROTIC SYNDROME [None]
  - OLIGOHYDRAMNIOS [None]
  - PULMONARY INFARCTION [None]
  - RENAL FAILURE [None]
